FAERS Safety Report 11225321 (Version 1)
Quarter: 2015Q2

REPORT INFORMATION
  Report Type: Spontaneous
  Country: US (occurrence: None)
  Receive Date: 20150626
  Receipt Date: 20150626
  Transmission Date: 20150821
  Serious: Yes (Life-Threatening)
  Sender: FDA-Public Use
  Company Number: None

PATIENT
  Sex: Male

DRUGS (2)
  1. RIZATRIPTAN [Suspect]
     Active Substance: RIZATRIPTAN
     Indication: HEADACHE
     Dosage: 1 AT ONSET REPEAT IN 2 HRS. MAX 3 IN 24 HRS. ORAL
     Route: 048
  2. NARATRIPTAN [Suspect]
     Active Substance: NARATRIPTAN HYDROCHLORIDE
     Indication: HEADACHE
     Dosage: 1 AT ONSET REPEAT IN 2 HRS. MAX 2 IN 24 HRS. ORAL
     Route: 048

REACTIONS (4)
  - Drug hypersensitivity [None]
  - Migraine [None]
  - Dyspnoea [None]
  - Seizure [None]
